FAERS Safety Report 10478358 (Version 1)
Quarter: 2014Q3

REPORT INFORMATION
  Report Type: Spontaneous
  Country: JP (occurrence: JP)
  Receive Date: 20140926
  Receipt Date: 20140926
  Transmission Date: 20150326
  Serious: Yes (Hospitalization)
  Sender: FDA-Public Use
  Company Number: JP-009507513-1409JPN010338

PATIENT
  Age: 36 Year
  Sex: Male

DRUGS (1)
  1. SULINDAC. [Suspect]
     Active Substance: SULINDAC
     Indication: DESMOID TUMOUR
     Dosage: UNK
     Route: 048

REACTIONS (3)
  - Hypomagnesaemia [Unknown]
  - Hypocalcaemia [Unknown]
  - Hypokalaemia [Unknown]
